FAERS Safety Report 25274130 (Version 1)
Quarter: 2025Q2

REPORT INFORMATION
  Report Type: Spontaneous
  Country: CN (occurrence: CN)
  Receive Date: 20250506
  Receipt Date: 20250506
  Transmission Date: 20250717
  Serious: Yes (Death, Hospitalization, Other)
  Sender: HISUN PHARMACEUTICALS USA INC
  Company Number: CN-Hisun Pharmaceuticals USA Inc.-000311

PATIENT
  Age: 53 Year
  Sex: Male
  Weight: 51 kg

DRUGS (4)
  1. DACTINOMYCIN [Suspect]
     Active Substance: DACTINOMYCIN
     Indication: Choriocarcinoma
     Dosage: D1-2, IVGTT
     Route: 042
     Dates: start: 20250326, end: 20250327
  2. ETOPOSIDE [Suspect]
     Active Substance: ETOPOSIDE
     Indication: Choriocarcinoma
     Dosage: D1, D2, IVGTT
     Route: 042
     Dates: start: 20250326, end: 20250327
  3. METHOTREXATE [Suspect]
     Active Substance: METHOTREXATE
     Indication: Choriocarcinoma
     Dosage: INTRAVENOUS INFUSION, IVGTT
     Route: 042
     Dates: start: 20250326, end: 20250327
  4. METHOTREXATE [Suspect]
     Active Substance: METHOTREXATE
     Indication: Choriocarcinoma
     Dosage: CONTINUOUS INFUSION FOR 12 HOURS, IVGTT
     Route: 042
     Dates: start: 20250326, end: 20250327

REACTIONS (6)
  - Multiple organ dysfunction syndrome [Fatal]
  - Hepatorenal failure [Fatal]
  - Neoplasm progression [Fatal]
  - Myelosuppression [Recovering/Resolving]
  - Alanine aminotransferase increased [Fatal]
  - Aspartate aminotransferase increased [Fatal]

NARRATIVE: CASE EVENT DATE: 20250101
